FAERS Safety Report 6314279-2 (Version None)
Quarter: 2009Q3

REPORT INFORMATION
  Report Type: 
  Country: None (occurrence: None)
  Receive Date: 20090817
  Receipt Date: 20090804
  Transmission Date: 20100115
  Serious: Yes (Hospitalization)
  Sender: FDA-Public Use
  Company Number: CIP09001914

PATIENT
  Age: 76 Year
  Sex: Female

DRUGS (20)
  1. RISEDRONATE SODIUM [Suspect]
     Indication: OSTEOPOROSIS
     Dosage: 17.5 MG ONCE WEEKLY, ORAL
     Route: 048
     Dates: start: 20081121, end: 20090213
  2. VOLTAREN /00372301/ (DICLOFENAC) [Concomitant]
  3. ELCITONIN (ELCATONIN) [Concomitant]
  4. LASIX [Concomitant]
  5. AMLODIPINE BESYLATE [Concomitant]
  6. DIOVAN [Concomitant]
  7. EBRANTIL /00631801/ (URAPIDIL) [Concomitant]
  8. EVAMYL (LORMETAZEPAM) [Concomitant]
  9. GLUCOBAY [Concomitant]
  10. EURAX /00211101/ (CROTAMITON) [Concomitant]
  11. FERROMIA /00023516/ (FERROUS CITRATE) [Concomitant]
  12. CORINAEL (NIFEDIPINE) [Concomitant]
  13. ANPLAG (SARPOGRELATE HYDROCHLORIDE) [Concomitant]
  14. PROCYLIN (BERAPROST SODIUM) [Concomitant]
  15. PLETAL [Concomitant]
  16. MAGMITT (MAGNESIUM OXIDE) [Concomitant]
  17. LAC B (LACTOBACILLUS BIFIDUS, LYOPHILIZED) [Concomitant]
  18. AMARYL [Concomitant]
  19. METHYL SALICYLATE  (METHYL SALICYLATE) [Concomitant]
  20. HYALURONATE SODIUM (HYALURONATE SODIUM) [Concomitant]

REACTIONS (10)
  - ARTHRALGIA [None]
  - CARDIAC FAILURE [None]
  - CONDITION AGGRAVATED [None]
  - FATIGUE [None]
  - GAIT DISTURBANCE [None]
  - MALAISE [None]
  - OEDEMA [None]
  - OEDEMA PERIPHERAL [None]
  - OSTEOARTHRITIS [None]
  - OSTEONECROSIS [None]
